FAERS Safety Report 18730386 (Version 1)
Quarter: 2021Q1

REPORT INFORMATION
  Report Type: Spontaneous
  Country: US (occurrence: US)
  Receive Date: 20210112
  Receipt Date: 20210112
  Transmission Date: 20210419
  Serious: No
  Sender: FDA-Public Use
  Company Number: US-INTRA-CELLULAR THERAPIES, INC.-2020ICT00249

PATIENT
  Sex: Male

DRUGS (1)
  1. CAPLYTA [Suspect]
     Active Substance: LUMATEPERONE
     Indication: SCHIZOPHRENIA
     Dosage: 42 MG, 1X/DAY
     Route: 048
     Dates: start: 2020

REACTIONS (5)
  - Rash [Not Recovered/Not Resolved]
  - Flushing [Not Recovered/Not Resolved]
  - Dermatitis acneiform [Not Recovered/Not Resolved]
  - Acne [Not Recovered/Not Resolved]
  - Skin injury [Not Recovered/Not Resolved]

NARRATIVE: CASE EVENT DATE: 2020
